FAERS Safety Report 4681872-2 (Version None)
Quarter: 2005Q2

REPORT INFORMATION
  Report Type: 
  Country: None (occurrence: None)
  Receive Date: 20050602
  Receipt Date: 20050513
  Transmission Date: 20051028
  Serious: Yes (Life-Threatening, Hospitalization)
  Sender: FDA-Public Use
  Company Number: DE_050515876

PATIENT
  Age: 62 Year
  Sex: Female
  Weight: 95 kg

DRUGS (6)
  1. ZYPREXA [Suspect]
     Indication: PSYCHOTIC DISORDER
     Dosage: 7.5 MG DAY
     Dates: start: 20050217, end: 20050303
  2. LEVOTHYROXINE SODIUM [Concomitant]
  3. ASPIRIN [Concomitant]
  4. LOCOL (FLUVASTATIN SODIUM) [Concomitant]
  5. BISOPROLOL FUMARATE [Concomitant]
  6. ZOLPIDEM TARTRATE [Concomitant]

REACTIONS (11)
  - COR PULMONALE [None]
  - DEEP VEIN THROMBOSIS [None]
  - FLUID RETENTION [None]
  - HEPATOSPLENOMEGALY [None]
  - JOINT SWELLING [None]
  - OEDEMA [None]
  - PULMONARY HYPERTENSION [None]
  - TREATMENT NONCOMPLIANCE [None]
  - URINARY RETENTION [None]
  - VASCULAR INSUFFICIENCY [None]
  - WEIGHT INCREASED [None]
